FAERS Safety Report 7207890-8 (Version None)
Quarter: 2011Q1

REPORT INFORMATION
  Report Type: 
  Country: None (occurrence: None)
  Receive Date: 20110104
  Receipt Date: 20101213
  Transmission Date: 20110831
  Serious: Yes (Other)
  Sender: FDA-Public Use
  Company Number: FR-PFIZER INC-2010170152

PATIENT
  Age: 89 Year
  Sex: Female

DRUGS (3)
  1. TAHOR [Suspect]
     Dosage: 10 MG, 1X/DAY
     Dates: start: 20100601, end: 20100101
  2. EZETROL [Suspect]
     Dosage: UNK
     Dates: start: 20100101, end: 20101201
  3. PERINDOPRIL ERBUMINE [Concomitant]
     Dosage: UNKNOWN

REACTIONS (3)
  - BLOOD CREATINE PHOSPHOKINASE INCREASED [None]
  - MYALGIA [None]
  - PANCREATITIS [None]
